FAERS Safety Report 9106703 (Version 1)
Quarter: 2013Q1

REPORT INFORMATION
  Report Type: Spontaneous
  Country: US (occurrence: US)
  Receive Date: 20130222
  Receipt Date: 20130222
  Transmission Date: 20140127
  Serious: No
  Sender: FDA-Public Use
  Company Number: US-009507513-1302USA008308

PATIENT
  Age: 34 Year
  Sex: Male
  Weight: 113.38 kg

DRUGS (3)
  1. JANUVIA [Suspect]
     Indication: TYPE 2 DIABETES MELLITUS
     Dosage: 100 MG ONCE DAILY
     Route: 048
     Dates: start: 2012
  2. GLIPIZIDE [Concomitant]
  3. SIMVASTATIN [Concomitant]
     Route: 048

REACTIONS (4)
  - Glycosylated haemoglobin increased [Unknown]
  - Blood glucose abnormal [Not Recovered/Not Resolved]
  - Medication residue present [Unknown]
  - Drug administration error [Unknown]
